FAERS Safety Report 8390465-5 (Version None)
Quarter: 2012Q2

REPORT INFORMATION
  Report Type: 
  Country: None (occurrence: None)
  Receive Date: 20120529
  Receipt Date: 20120516
  Transmission Date: 20120825
  Serious: Yes (Other)
  Sender: FDA-Public Use
  Company Number: ZA-JNJFOC-20120515211

PATIENT
  Sex: Female
  Weight: 68 kg

DRUGS (6)
  1. SOLU-CORTEF [Concomitant]
     Route: 065
  2. REVELLEX [Suspect]
     Indication: RHEUMATOID ARTHRITIS
     Dosage: SECOND INFUSION
     Route: 042
  3. REVELLEX [Suspect]
     Route: 042
     Dates: start: 20111101
  4. PHENERGAN [Suspect]
     Indication: PRODUCT USED FOR UNKNOWN INDICATION
     Route: 065
  5. REVELLEX [Suspect]
     Dosage: SECOND INFUSION
     Route: 042
     Dates: start: 20120111
  6. REVELLEX [Suspect]
     Dosage: SECOND INFUSION
     Route: 042
     Dates: start: 20120511, end: 20120511

REACTIONS (9)
  - INFUSION RELATED REACTION [None]
  - LIP SWELLING [None]
  - RASH [None]
  - PRURITUS [None]
  - RESTLESS LEGS SYNDROME [None]
  - EYE SWELLING [None]
  - TREMOR [None]
  - URTICARIA [None]
  - NAUSEA [None]
